FAERS Safety Report 10370417 (Version 1)
Quarter: 2014Q3

REPORT INFORMATION
  Report Type: Spontaneous
  Country: US (occurrence: US)
  Receive Date: 20140808
  Receipt Date: 20140808
  Transmission Date: 20150326
  Serious: No
  Sender: FDA-Public Use
  Company Number: US-BAYER-2014-118742

PATIENT

DRUGS (1)
  1. MAGNEVIST [Suspect]
     Active Substance: GADOPENTETATE DIMEGLUMINE
     Indication: SCAN BRAIN
     Dosage: 2 ML, ONCE
     Dates: start: 20140806, end: 20140806

REACTIONS (1)
  - Rash generalised [None]

NARRATIVE: CASE EVENT DATE: 20140806
